FAERS Safety Report 8607290-X (Version None)
Quarter: 2012Q3

REPORT INFORMATION
  Report Type: 
  Country: None (occurrence: None)
  Receive Date: 20120807
  Receipt Date: 20120724
  Transmission Date: 20120928
  Serious: Yes (Other)
  Sender: FDA-Public Use
  Company Number: DKLU1083632

PATIENT
  Sex: Male

DRUGS (12)
  1. ONFI [Suspect]
     Indication: INFANTILE SPASMS
  2. TOPIRAMATE [Suspect]
     Indication: INFANTILE SPASMS
  3. PHENYTOIN [Suspect]
     Indication: INFANTILE SPASMS
  4. PHENOBARBITAL TAB [Suspect]
     Indication: INFANTILE SPASMS
  5. LAMOTRIGINE [Suspect]
     Indication: INFANTILE SPASMS
  6. CORTICOTROPIN [Suspect]
     Indication: PRODUCT USED FOR UNKNOWN INDICATION
  7. SULTIAME (SULTIAME) [Concomitant]
  8. GABAPENTIN [Suspect]
     Indication: INFANTILE SPASMS
  9. VALPROIC ACID [Suspect]
     Indication: INFANTILE SPASMS
  10. CLONAZEPAM [Suspect]
     Indication: INFANTILE SPASMS
  11. ZONISAMIDE [Concomitant]
  12. CARBAMAZEPINE [Suspect]
     Indication: INFANTILE SPASMS

REACTIONS (6)
  - FALL [None]
  - HEAD INJURY [None]
  - DRUG INEFFECTIVE [None]
  - CONVULSION [None]
  - DEVELOPMENTAL DELAY [None]
  - DROP ATTACKS [None]
